FAERS Safety Report 4921908-4 (Version None)
Quarter: 2006Q1

REPORT INFORMATION
  Report Type: 
  Country: None (occurrence: None)
  Receive Date: 20060224
  Receipt Date: 20051020
  Transmission Date: 20060701
  Serious: No
  Sender: FDA-Public Use
  Company Number: US-BRISTOL-MYERS SQUIBB COMPANY-13205448

PATIENT
  Age: 47 Year
  Sex: Female
  Weight: 71 kg

DRUGS (1)
  1. MONISTAT 1 COMBINATION PACK [Suspect]

REACTIONS (2)
  - VAGINAL BURNING SENSATION [None]
  - VAGINAL HAEMORRHAGE [None]
